FAERS Safety Report 18902162 (Version 1)
Quarter: 2021Q1

REPORT INFORMATION
  Report Type: Spontaneous
  Country: US (occurrence: US)
  Receive Date: 20210217
  Receipt Date: 20210217
  Transmission Date: 20210420
  Serious: No
  Sender: FDA-Public Use
  Company Number: US-JNJFOC-20210222616

PATIENT
  Age: 6 Decade
  Sex: Female
  Weight: 55 kg

DRUGS (1)
  1. REMICADE [Suspect]
     Active Substance: INFLIXIMAB
     Indication: COLITIS ULCERATIVE
     Route: 042
     Dates: start: 20201024

REACTIONS (4)
  - Muscular weakness [Unknown]
  - Memory impairment [Unknown]
  - Tachycardia [Unknown]
  - Alopecia [Unknown]

NARRATIVE: CASE EVENT DATE: 202012
